FAERS Safety Report 5953782-1 (Version None)
Quarter: 2008Q4

REPORT INFORMATION
  Report Type: 
  Country: None (occurrence: None)
  Receive Date: 20081114
  Receipt Date: 20081104
  Transmission Date: 20090506
  Serious: Yes (Hospitalization)
  Sender: FDA-Public Use
  Company Number: US-PFIZER INC-2008070615

PATIENT
  Sex: Female
  Weight: 103 kg

DRUGS (11)
  1. LYRICA [Suspect]
     Indication: MUSCLE SPASMS
     Dates: end: 20080811
  2. LYRICA [Suspect]
     Indication: PAIN IN EXTREMITY
  3. LYRICA [Suspect]
     Indication: MUSCULAR WEAKNESS
  4. CP-945,598 [Suspect]
     Indication: WEIGHT DECREASED
     Dosage: DAILY DOSE:20MG
     Route: 048
     Dates: start: 20070723
  5. BACLOFEN [Concomitant]
     Indication: MUSCLE SPASMS
     Route: 048
     Dates: start: 20080709
  6. BACLOFEN [Concomitant]
     Indication: PAIN IN EXTREMITY
  7. BACLOFEN [Concomitant]
     Indication: MUSCULAR WEAKNESS
  8. NUVARING [Concomitant]
     Indication: CONTRACEPTION
     Dosage: TEXT:1 UNIT
     Dates: start: 20050101
  9. TAMIFLU [Concomitant]
     Indication: INFLUENZA
     Dates: start: 20080130
  10. IMMUNE GLOBULIN INTRAVENOUS (HUMAN) [Concomitant]
     Route: 042
  11. CYMBALTA [Concomitant]
     Route: 048
     Dates: start: 20080801

REACTIONS (3)
  - GUILLAIN-BARRE SYNDROME [None]
  - MUSCULAR WEAKNESS [None]
  - PARAESTHESIA [None]
